FAERS Safety Report 4475076-6 (Version None)
Quarter: 2004Q4

REPORT INFORMATION
  Report Type: 
  Country: None (occurrence: None)
  Receive Date: 20041015
  Receipt Date: 20041006
  Transmission Date: 20050328
  Serious: Yes (Other)
  Sender: FDA-Public Use
  Company Number: US-JNJFOC-20041002491

PATIENT
  Sex: Female
  Weight: 86.18 kg

DRUGS (7)
  1. REMICADE [Suspect]
     Indication: CROHN'S DISEASE
     Route: 042
  2. CIPRO [Concomitant]
  3. KLOR-CON [Concomitant]
  4. PROZAC [Concomitant]
  5. PHENERGAN [Concomitant]
  6. DEMEROL [Concomitant]
  7. MORPHINE [Concomitant]

REACTIONS (14)
  - DYSGRAPHIA [None]
  - EYE SWELLING [None]
  - FLUID RETENTION [None]
  - HEADACHE [None]
  - MEMORY IMPAIRMENT [None]
  - MOBILITY DECREASED [None]
  - NAUSEA [None]
  - PAIN [None]
  - SKIN STRIAE [None]
  - SWELLING [None]
  - SWELLING FACE [None]
  - TREMOR [None]
  - UPPER RESPIRATORY FUNGAL INFECTION [None]
  - VISUAL DISTURBANCE [None]
